FAERS Safety Report 8638612 (Version 2)
Quarter: 2013Q3

REPORT INFORMATION
  Report Type: Report from Study
  Country: US (occurrence: US)
  Receive Date: 20120627
  Receipt Date: 20130726
  Transmission Date: 20140515
  Serious: Yes (Hospitalization, Other)
  Sender: FDA-Public Use
  Company Number: US-ABBOTT-12P-163-0947543-00

PATIENT
  Sex: Male
  Weight: 79 kg

DRUGS (7)
  1. HUMIRA [Suspect]
     Indication: PSORIASIS
     Route: 058
     Dates: start: 2008, end: 201008
  2. HUMIRA [Suspect]
     Indication: PSORIATIC ARTHROPATHY
     Route: 058
     Dates: start: 2011, end: 201210
  3. ACIPHEX [Concomitant]
     Indication: BARRETT^S OESOPHAGUS
  4. ACIPHEX [Concomitant]
     Indication: CROHN^S DISEASE
  5. LISINOPRIL [Concomitant]
     Indication: HYPERTENSION
  6. ZOLOFT [Concomitant]
     Indication: POST-TRAUMATIC STRESS DISORDER
  7. VALTREX [Concomitant]
     Indication: PRODUCT USED FOR UNKNOWN INDICATION

REACTIONS (13)
  - Capillary leak syndrome [Recovered/Resolved]
  - Skin discolouration [Not Recovered/Not Resolved]
  - Poor peripheral circulation [Not Recovered/Not Resolved]
  - Capillary fragility [Unknown]
  - Peripheral vascular disorder [Recovered/Resolved]
  - Skin necrosis [Recovered/Resolved]
  - Skin graft failure [Not Recovered/Not Resolved]
  - Impaired healing [Recovered/Resolved]
  - Infectious colitis [Recovered/Resolved]
  - Pyrexia [Recovered/Resolved]
  - Nausea [Recovered/Resolved]
  - Clostridium difficile infection [Recovered/Resolved]
  - Sinusitis [Not Recovered/Not Resolved]
